FAERS Safety Report 4501505-5 (Version None)
Quarter: 2004Q4

REPORT INFORMATION
  Report Type: 
  Country: None (occurrence: None)
  Receive Date: 20040928
  Receipt Date: 20040817
  Transmission Date: 20050328
  Serious: No
  Sender: FDA-Public Use
  Company Number: 04P-163-0270832-00

PATIENT
  Age: 79 Year
  Sex: Female
  Weight: 58.9676 kg

DRUGS (8)
  1. HUMIRA [Suspect]
     Indication: RHEUMATOID ARTHRITIS
     Dosage: 40 MG, 1 IN 2 WK, SUBCUTANEOUS
     Route: 058
     Dates: start: 20040701
  2. FLUVASTATIN SODIUM [Concomitant]
  3. FEXOFENADNE HYDROCHLORIDE [Concomitant]
  4. DIOVAN [Concomitant]
  5. PREDNISONE [Concomitant]
  6. FOLIC ACID [Concomitant]
  7. PAROXETINE HYDROCHLORIDE [Concomitant]
  8. CALCIUM [Concomitant]

REACTIONS (1)
  - PARAESTHESIA [None]
